FAERS Safety Report 4752955-3 (Version None)
Quarter: 2005Q3

REPORT INFORMATION
  Report Type: 
  Country: None (occurrence: None)
  Receive Date: 20050823
  Receipt Date: 20050808
  Transmission Date: 20060218
  Serious: Yes (Other)
  Sender: FDA-Public Use
  Company Number: USA050495964

PATIENT
  Age: 64 Year
  Sex: Female

DRUGS (2)
  1. FORTEO [Suspect]
     Indication: OSTEOPOROSIS
     Dosage: 20 UG/1 IN THE EVENING
     Dates: start: 20050412
  2. NITROGLYCERIN [Concomitant]

REACTIONS (11)
  - ARTHRITIS [None]
  - BONE PAIN [None]
  - DEVICE FAILURE [None]
  - DYSPHAGIA [None]
  - HAEMORRHAGE [None]
  - INSOMNIA [None]
  - MUSCLE SPASMS [None]
  - NECK PAIN [None]
  - PAIN IN EXTREMITY [None]
  - PHARMACEUTICAL PRODUCT COMPLAINT [None]
  - PROCEDURAL PAIN [None]
